FAERS Safety Report 13694656 (Version 1)
Quarter: 2017Q2

REPORT INFORMATION
  Report Type: Report from Study
  Country: US (occurrence: US)
  Receive Date: 20170627
  Receipt Date: 20170627
  Transmission Date: 20170830
  Serious: Yes (Hospitalization)
  Sender: FDA-Public Use
  Company Number: US-BAYER-2017-086617

PATIENT
  Age: 30 Year
  Sex: Female

DRUGS (1)
  1. STIVARGA [Suspect]
     Active Substance: REGORAFENIB
     Indication: COLON CANCER
     Dosage: 160 MG, DAILY, 21 DAYS ON 7 DAYS OFF
     Route: 048
     Dates: start: 20170426, end: 2017

REACTIONS (8)
  - Feeding disorder [Not Recovered/Not Resolved]
  - Pain [None]
  - Feeling of body temperature change [None]
  - Vomiting [None]
  - Weight decreased [Not Recovered/Not Resolved]
  - Nausea [None]
  - Pain [None]
  - Pyrexia [None]

NARRATIVE: CASE EVENT DATE: 2017
